FAERS Safety Report 16294414 (Version 1)
Quarter: 2019Q2

REPORT INFORMATION
  Report Type: Spontaneous
  Country: US (occurrence: US)
  Receive Date: 20190509
  Receipt Date: 20190509
  Transmission Date: 20190711
  Serious: No
  Sender: FDA-Public Use
  Company Number: US-ROCHE-2087826

PATIENT
  Sex: Female

DRUGS (10)
  1. PLAVIX [Concomitant]
     Active Substance: CLOPIDOGREL BISULFATE
  2. TRAZODONE [Concomitant]
     Active Substance: TRAZODONE HYDROCHLORIDE
  3. ALBUTEROL [SALBUTAMOL] [Concomitant]
     Active Substance: ALBUTEROL
  4. SIMVASTATIN. [Concomitant]
     Active Substance: SIMVASTATIN
  5. LOSARTAN. [Concomitant]
     Active Substance: LOSARTAN
  6. METFORMIN [Concomitant]
     Active Substance: METFORMIN HYDROCHLORIDE
  7. PROTONIX (OMEPRAZOLE) [Concomitant]
     Active Substance: OMEPRAZOLE
  8. COREG [Concomitant]
     Active Substance: CARVEDILOL
  9. ESBRIET [Suspect]
     Active Substance: PIRFENIDONE
     Indication: IDIOPATHIC PULMONARY FIBROSIS
     Dosage: 2 CAPSULES
     Route: 048
     Dates: start: 20161118
  10. HYZAAR [Concomitant]
     Active Substance: HYDROCHLOROTHIAZIDE\LOSARTAN POTASSIUM

REACTIONS (1)
  - Gastric infection [Unknown]
